FAERS Safety Report 17733906 (Version 1)
Quarter: 2020Q2

REPORT INFORMATION
  Report Type: Spontaneous
  Country: CA (occurrence: CA)
  Receive Date: 20200501
  Receipt Date: 20200501
  Transmission Date: 20200714
  Serious: Yes (Hospitalization)
  Sender: FDA-Public Use
  Company Number: CA-PFIZER INC-2020174013

PATIENT
  Age: 39 Year
  Sex: Male

DRUGS (1)
  1. VENLAFAXINE ER [Suspect]
     Active Substance: VENLAFAXINE HYDROCHLORIDE
     Dosage: 7500 MG
     Route: 048

REACTIONS (11)
  - Intentional product misuse [Unknown]
  - Hypertension [Unknown]
  - Seizure [Unknown]
  - Hypertonia [Unknown]
  - Hypokalaemia [Unknown]
  - Altered state of consciousness [Unknown]
  - Overdose [Unknown]
  - Pneumonia [Unknown]
  - Pyrexia [Unknown]
  - Tachycardia [Unknown]
  - Hypoglycaemia [Unknown]
